FAERS Safety Report 20594964 (Version 2)
Quarter: 2022Q2

REPORT INFORMATION
  Report Type: Spontaneous
  Country: US (occurrence: US)
  Receive Date: 20220315
  Receipt Date: 20220510
  Transmission Date: 20220721
  Serious: Yes (Other)
  Sender: FDA-Public Use
  Company Number: US-GLENMARK PHARMACEUTICALS-2022GMK071065

PATIENT

DRUGS (4)
  1. OXCARBAZEPINE [Suspect]
     Active Substance: OXCARBAZEPINE
     Indication: Product used for unknown indication
     Dosage: 300 MILLIGRAM, TID
     Route: 048
  2. OXCARBAZEPINE [Suspect]
     Active Substance: OXCARBAZEPINE
     Dosage: 300 MILLIGRAM, BID
     Route: 048
  3. OXCARBAZEPINE [Suspect]
     Active Substance: OXCARBAZEPINE
     Dosage: 300 MILLIGRAM, BID (RESTARTED)
     Route: 048
     Dates: start: 2022
  4. VRAYLAR [Suspect]
     Active Substance: CARIPRAZINE
     Indication: Product used for unknown indication
     Dosage: UNK, COUPLE OF WEEKS
     Route: 065
     Dates: start: 2022, end: 20220301

REACTIONS (5)
  - Upper airway obstruction [Recovering/Resolving]
  - Inappropriate schedule of product administration [Unknown]
  - Condition aggravated [Recovering/Resolving]
  - Swelling [Unknown]
  - Dyspnoea [Recovering/Resolving]
